FAERS Safety Report 17487191 (Version 1)
Quarter: 2020Q1

REPORT INFORMATION
  Report Type: Spontaneous
  Country: DE (occurrence: DE)
  Receive Date: 20200303
  Receipt Date: 20200303
  Transmission Date: 20200409
  Serious: Yes (Disabling)
  Sender: FDA-Public Use
  Company Number: DE-TEVA-2020-DE-1193069

PATIENT
  Age: 64 Year
  Sex: Female
  Weight: 65 kg

DRUGS (5)
  1. CALCIUM VERLA [Concomitant]
     Indication: OSTEOPENIA
     Dosage: DAILY DOSE: 1200 MG MILLGRAM(S) EVERY DAYS 2 SEPARATED DOSES
     Dates: start: 20190809
  2. DEKRISTOL [Concomitant]
     Active Substance: CHOLECALCIFEROL
     Indication: VITAMIN D DEFICIENCY
     Dosage: DAILY DOSE: 20000 IU INTERNATIONAL UNIT(S) EVERY WEEKS
     Route: 048
     Dates: start: 20190809
  3. OXYCODON 5 / 2.5 [Concomitant]
     Indication: POSTOPERATIVE ANALGESIA
     Dosage: 4 DOSAGE FORMS DAILY; DAILY DOSE: 2 DF DOSAGE FORM EVERY DAYS 2 SEPARATED DOSES
     Dates: start: 20190718, end: 20190831
  4. LEVOFLOXACIN. [Suspect]
     Active Substance: LEVOFLOXACIN
     Indication: SPONDYLITIS
     Dosage: 2000 MILLIGRAM DAILY; DAILY DOSE: 1000 MG MILLGRAM(S) EVERY DAYS 2 SEPARATED DOSES
     Route: 048
     Dates: start: 20190805, end: 20190910
  5. VITAMIN B12 ANKERMANN [Concomitant]
     Indication: VITAMIN D DEFICIENCY
     Dosage: DAILY DOSE: 3000 IU INTERNATIONAL UNIT(S) EVERY WEEKS 3 SEPARATED DOSES , 3000 IU 1 WEEKS

REACTIONS (5)
  - Myalgia [Not Recovered/Not Resolved]
  - Osteoarthritis [Not Recovered/Not Resolved]
  - Gait disturbance [Not Recovered/Not Resolved]
  - Arthritis [Not Recovered/Not Resolved]
  - Muscle spasms [Not Recovered/Not Resolved]

NARRATIVE: CASE EVENT DATE: 2019
